FAERS Safety Report 21377036 (Version 8)
Quarter: 2023Q2

REPORT INFORMATION
  Report Type: Report from Study
  Country: US (occurrence: US)
  Receive Date: 20220926
  Receipt Date: 20230505
  Transmission Date: 20230722
  Serious: Yes (Other)
  Sender: FDA-Public Use
  Company Number: US-NOVARTISTESTPH-NVSC2022US217057

PATIENT
  Sex: Female

DRUGS (1)
  1. COSENTYX [Suspect]
     Active Substance: SECUKINUMAB
     Indication: Product used for unknown indication
     Dosage: UNK
     Route: 065

REACTIONS (7)
  - Brain oedema [Unknown]
  - Loss of consciousness [Unknown]
  - Gait inability [Unknown]
  - Condition aggravated [Unknown]
  - Fatigue [Unknown]
  - Peripheral swelling [Unknown]
  - Product dose omission issue [Unknown]
